FAERS Safety Report 5157143-7 (Version None)
Quarter: 2006Q4

REPORT INFORMATION
  Report Type: 
  Country: None (occurrence: None)
  Receive Date: 20061115
  Receipt Date: 20061106
  Transmission Date: 20070319
  Serious: No
  Sender: FDA-Public Use
  Company Number: 2006-PI279

PATIENT
  Age: 61 Year
  Sex: Male

DRUGS (1)
  1. CHLORAPREP WITH TINT [Suspect]
     Indication: PREOPERATIVE CARE
     Dosage: ONCE, TOPICAL
     Route: 061

REACTIONS (3)
  - ANAPHYLACTIC REACTION [None]
  - APPLICATION SITE PRURITUS [None]
  - PROCEDURAL COMPLICATION [None]
